FAERS Safety Report 9530980 (Version 1)
Quarter: 2013Q3

REPORT INFORMATION
  Report Type: Spontaneous
  Country: BR (occurrence: BR)
  Receive Date: 20130918
  Receipt Date: 20130918
  Transmission Date: 20140515
  Serious: Yes (Other)
  Sender: FDA-Public Use
  Company Number: BR-ASTRAZENECA-2013SE69153

PATIENT
  Age: 62 Year
  Sex: Male

DRUGS (2)
  1. ATACAND [Suspect]
     Route: 048
     Dates: end: 201309
  2. ATACAND [Suspect]
     Route: 048

REACTIONS (1)
  - Hypertension [Recovered/Resolved]
